FAERS Safety Report 14241643 (Version 1)
Quarter: 2017Q4

REPORT INFORMATION
  Report Type: Report from Study
  Country: US (occurrence: US)
  Receive Date: 20171201
  Receipt Date: 20171201
  Transmission Date: 20180321
  Serious: Yes (Hospitalization, Other)
  Sender: FDA-Public Use
  Company Number: US-ROCHE-1831488

PATIENT
  Age: 44 Year
  Sex: Female
  Weight: 70.9 kg

DRUGS (3)
  1. TRASTUZUMAB. [Suspect]
     Active Substance: TRASTUZUMAB
     Indication: METASTASES TO MENINGES
     Dosage: DATE OF LAST DOSE: 09/AUG/2016, CYCLE 4
     Route: 042
     Dates: start: 20160505
  2. LOVENOX [Concomitant]
     Active Substance: ENOXAPARIN SODIUM
     Indication: HAEMATOMA
     Route: 058
  3. TRASTUZUMAB. [Suspect]
     Active Substance: TRASTUZUMAB
     Indication: HER-2 POSITIVE BREAST CANCER

REACTIONS (8)
  - Deep vein thrombosis [Not Recovered/Not Resolved]
  - Abdominal pain [Recovered/Resolved]
  - Syncope [Not Recovered/Not Resolved]
  - Diarrhoea [Recovered/Resolved]
  - Muscular weakness [Not Recovered/Not Resolved]
  - Muscle haemorrhage [Not Recovered/Not Resolved]
  - Anaemia [Not Recovered/Not Resolved]
  - Haematoma [Not Recovered/Not Resolved]

NARRATIVE: CASE EVENT DATE: 20160603
